FAERS Safety Report 16676117 (Version 1)
Quarter: 2019Q3

REPORT INFORMATION
  Report Type: Spontaneous
  Country: DE (occurrence: DE)
  Receive Date: 20190807
  Receipt Date: 20190807
  Transmission Date: 20191004
  Serious: Yes (Hospitalization, Other)
  Sender: FDA-Public Use
  Company Number: DE-DRREDDYS-GER/GER/19/0112637

PATIENT
  Sex: Female

DRUGS (3)
  1. RAMIPRIL. [Suspect]
     Active Substance: RAMIPRIL
     Indication: PRODUCT USED FOR UNKNOWN INDICATION
     Dosage: 1-0-1  LONG-TERM MEDICATION (DAUERMEDIKATION)
  2. CLONIDIN 75 MG [Suspect]
     Active Substance: CLONIDINE
     Indication: PRODUCT USED FOR UNKNOWN INDICATION
     Dosage: 0-1-0-1 LONG-TERM MEDICATION (DAUERMEDIKATION)
  3. SINUPRET EXTRACT [Suspect]
     Active Substance: HERBALS
     Indication: SINUSITIS

REACTIONS (3)
  - Rhinalgia [Recovered/Resolved]
  - Parosmia [Recovered/Resolved]
  - Blood pressure abnormal [Recovered/Resolved]

NARRATIVE: CASE EVENT DATE: 20190704
